FAERS Safety Report 26059885 (Version 1)
Quarter: 2025Q4

REPORT INFORMATION
  Report Type: Spontaneous
  Country: CA (occurrence: CA)
  Receive Date: 20251118
  Receipt Date: 20251118
  Transmission Date: 20260118
  Serious: Yes (Other)
  Sender: FRESENIUS KABI
  Company Number: CA-FreseniusKabi-FK202515391

PATIENT

DRUGS (2)
  1. DEXTROSE [Suspect]
     Active Substance: DEXTROSE MONOHYDRATE
     Indication: Product used for unknown indication
     Dosage: FOA: SOLUTION INTRAVENOUS
     Route: 065
  2. FLUOROURACIL [Suspect]
     Active Substance: FLUOROURACIL
     Indication: Product used for unknown indication
     Dosage: FOA: SOLUTION INTRAVENOUS

REACTIONS (4)
  - Device infusion issue [Unknown]
  - Incorrect drug administration rate [Unknown]
  - Syncope [Unknown]
  - Toxicity to various agents [Unknown]
